FAERS Safety Report 15154431 (Version 2)
Quarter: 2018Q3

REPORT INFORMATION
  Report Type: Report from Study
  Country: CA (occurrence: CA)
  Receive Date: 20180717
  Receipt Date: 20180727
  Transmission Date: 20181010
  Serious: Yes (Hospitalization)
  Sender: FDA-Public Use
  Company Number: CA-JNJFOC-20180712211

PATIENT
  Age: 46 Year
  Sex: Male
  Weight: 81.65 kg

DRUGS (2)
  1. REMICADE [Suspect]
     Active Substance: INFLIXIMAB
     Indication: CROHN^S DISEASE
     Route: 042
     Dates: start: 20170601
  2. REMICADE [Suspect]
     Active Substance: INFLIXIMAB
     Indication: CROHN^S DISEASE
     Route: 042

REACTIONS (6)
  - Procedural pain [Unknown]
  - Neuralgia [Unknown]
  - General physical health deterioration [Unknown]
  - Crohn^s disease [Unknown]
  - Gastrointestinal neoplasm [Unknown]
  - Injection site infection [Unknown]

NARRATIVE: CASE EVENT DATE: 20180527
